FAERS Safety Report 25575993 (Version 1)
Quarter: 2025Q3

REPORT INFORMATION
  Report Type: Spontaneous
  Country: CN (occurrence: CN)
  Receive Date: 20250718
  Receipt Date: 20250718
  Transmission Date: 20251021
  Serious: Yes (Hospitalization)
  Sender: NOVITIUM PHARMA
  Company Number: CN-NOVITIUMPHARMA-2025CNNVP01630

PATIENT
  Age: 36 Year
  Sex: Female

DRUGS (11)
  1. PREDNISONE [Suspect]
     Active Substance: PREDNISONE
     Indication: Pyoderma gangrenosum
     Dates: start: 20240513
  2. PREDNISONE [Suspect]
     Active Substance: PREDNISONE
     Indication: Colitis ulcerative
  3. PREDNISONE [Suspect]
     Active Substance: PREDNISONE
     Dates: end: 2024
  4. RISPERIDONE [Concomitant]
     Active Substance: RISPERIDONE
     Indication: Schizophrenia
  5. MESALAMINE [Concomitant]
     Active Substance: MESALAMINE
     Indication: Colitis ulcerative
     Dosage: UNSPECIFIED DOSE
  6. MESALAMINE [Concomitant]
     Active Substance: MESALAMINE
  7. ERYTHROMYCIN [Concomitant]
     Active Substance: ERYTHROMYCIN
     Indication: Pyoderma gangrenosum
  8. ADALIMUMAB [Concomitant]
     Active Substance: ADALIMUMAB
     Indication: Pyoderma gangrenosum
     Route: 058
  9. ADALIMUMAB [Concomitant]
     Active Substance: ADALIMUMAB
     Indication: Colitis ulcerative
  10. UPADACITINIB [Concomitant]
     Active Substance: UPADACITINIB
     Indication: Pyoderma gangrenosum
  11. UPADACITINIB [Concomitant]
     Active Substance: UPADACITINIB
     Indication: Colitis ulcerative

REACTIONS (1)
  - Condition aggravated [Recovered/Resolved]
